FAERS Safety Report 4368821-1 (Version None)
Quarter: 2004Q2

REPORT INFORMATION
  Report Type: 
  Country: None (occurrence: None)
  Receive Date: 20040528
  Receipt Date: 20040524
  Transmission Date: 20050107
  Serious: No
  Sender: FDA-Public Use
  Company Number: TAP2004Q00561

PATIENT
  Age: 44 Year
  Sex: Female
  Weight: 71.2147 kg

DRUGS (6)
  1. LUPRON DEPOT-3 [Suspect]
     Indication: UTERINE LEIOMYOMA
     Dosage: 3.75 MG, 1 IN 1 M, INTRAMUSCULAR
     Route: 030
     Dates: start: 20031215, end: 20040317
  2. NUMEROUS UNSPECIFIED MEDICATIONS [Suspect]
  3. IMITREX [Concomitant]
  4. EXCEDRIN (THOMAPYRIN N) [Concomitant]
  5. AUGMENTIN (AMOXICILLIN W/CLAVULANATE POTASSIUM [Concomitant]
  6. AYGESTIN [Concomitant]

REACTIONS (2)
  - GLOMERULONEPHRITIS [None]
  - POST PROCEDURAL COMPLICATION [None]
